FAERS Safety Report 15276378 (Version 1)
Quarter: 2018Q3

REPORT INFORMATION
  Report Type: Spontaneous
  Country: US (occurrence: US)
  Receive Date: 20180728
  Receipt Date: 20180728
  Transmission Date: 20181010
  Serious: Yes (Hospitalization)
  Sender: FDA-Public Use
  Company Number: None

PATIENT
  Sex: Male
  Weight: 94.35 kg

DRUGS (16)
  1. NIFEDIPINE. [Concomitant]
     Active Substance: NIFEDIPINE
  2. POTASSIUM CL [Concomitant]
     Active Substance: POTASSIUM CHLORIDE
  3. ACETAMINOPHEN. [Concomitant]
     Active Substance: ACETAMINOPHEN
  4. ALLOPURINOIL [Concomitant]
  5. CALCIUM CARBONATE. [Concomitant]
     Active Substance: CALCIUM CARBONATE
  6. KETOROLAC INJECTION [Concomitant]
  7. TAMSULOSIN [Concomitant]
     Active Substance: TAMSULOSIN
  8. CASODEX [Suspect]
     Active Substance: BICALUTAMIDE
     Dates: end: 20180723
  9. MORPHINE [Concomitant]
     Active Substance: MORPHINE
  10. ATORVASTATIN [Concomitant]
     Active Substance: ATORVASTATIN
  11. LEUPROLIDE ACETATE. [Suspect]
     Active Substance: LEUPROLIDE ACETATE
     Dates: end: 20180427
  12. HYDRALAZINE [Concomitant]
     Active Substance: HYDRALAZINE HYDROCHLORIDE
  13. HYDROCHLOROTHIAZINE [Concomitant]
  14. ASPIRIN. [Concomitant]
     Active Substance: ASPIRIN
  15. RIVAROXABAN [Concomitant]
     Active Substance: RIVAROXABAN
  16. SOTALOL. [Concomitant]
     Active Substance: SOTALOL

REACTIONS (4)
  - Cerebral infarction [None]
  - Embolic stroke [None]
  - Hypotension [None]
  - Dysarthria [None]

NARRATIVE: CASE EVENT DATE: 20180723
